FAERS Safety Report 24172421 (Version 1)
Quarter: 2024Q3

REPORT INFORMATION
  Report Type: Spontaneous
  Country: US (occurrence: US)
  Receive Date: 20240805
  Receipt Date: 20240805
  Transmission Date: 20241016
  Serious: Yes (Death, Other)
  Sender: BRISTOL MYERS SQUIBB
  Company Number: US-BRISTOL-MYERS SQUIBB COMPANY-2024-122341

PATIENT
  Age: 73 Year
  Sex: Female
  Weight: 68.95 kg

DRUGS (2)
  1. POMALYST [Suspect]
     Active Substance: POMALIDOMIDE
     Indication: Plasma cell myeloma
     Dosage: DOSE : 2MG;     FREQ : 1-21 ON AND 7 DAYS OFF
     Route: 048
     Dates: start: 20240201, end: 20240529
  2. PANTOPRAZOLE [Concomitant]
     Active Substance: PANTOPRAZOLE
     Indication: Product used for unknown indication

REACTIONS (1)
  - Plasma cell myeloma [Fatal]

NARRATIVE: CASE EVENT DATE: 20240708
